FAERS Safety Report 24882529 (Version 1)
Quarter: 2025Q1

REPORT INFORMATION
  Report Type: Spontaneous
  Country: US (occurrence: None)
  Receive Date: 20250123
  Receipt Date: 20250123
  Transmission Date: 20250409
  Serious: No
  Sender: FDA-CTU
  Company Number: None

PATIENT
  Age: 83 Year
  Sex: Female
  Weight: 79.38 kg

DRUGS (8)
  1. XIIDRA [Suspect]
     Active Substance: LIFITEGRAST
     Indication: Dry eye
     Dosage: FREQUENCY : TWICE A DAY;?
     Route: 047
     Dates: start: 20241114, end: 20241205
  2. AMLODIPINE BESYLATE [Concomitant]
     Active Substance: AMLODIPINE BESYLATE
  3. COLCHICINE [Concomitant]
     Active Substance: COLCHICINE
  4. COENZYME Q10 [Concomitant]
     Active Substance: DIETARY SUPPLEMENT\UBIDECARENONE
  5. HERBALS\TURMERIC [Concomitant]
     Active Substance: HERBALS\TURMERIC
  6. B12 [Concomitant]
  7. Super K2 plus [Concomitant]
  8. TRIPLE MAGNESIUM COMPLEX [Concomitant]

REACTIONS (4)
  - Drug ineffective [None]
  - Ocular hyperaemia [None]
  - Vision blurred [None]
  - Swelling of eyelid [None]

NARRATIVE: CASE EVENT DATE: 20241204
